FAERS Safety Report 10235358 (Version 1)
Quarter: 2014Q2

REPORT INFORMATION
  Report Type: Spontaneous
  Country: MY (occurrence: None)
  Receive Date: 20140611
  Receipt Date: 20140611
  Transmission Date: 20141212
  Serious: Yes (Other)
  Sender: FDA-Public Use
  Company Number: ABR_01673_2014

PATIENT
  Age: 25 Year
  Sex: Female

DRUGS (1)
  1. ERYDERM (ERYDERM) (NOT SPECIFIED) [Suspect]
     Indication: ACNE
     Dosage: DF, ORAL
     Route: 048

REACTIONS (2)
  - Rash pustular [None]
  - Pruritus [None]
